FAERS Safety Report 10231807 (Version 1)
Quarter: 2014Q2

REPORT INFORMATION
  Report Type: Spontaneous
  Country: CN (occurrence: CN)
  Receive Date: 20140612
  Receipt Date: 20140612
  Transmission Date: 20141212
  Serious: Yes (Hospitalization)
  Sender: FDA-Public Use
  Company Number: CN-GILEAD-2014-0104861

PATIENT
  Sex: Male
  Weight: 62 kg

DRUGS (5)
  1. HEPSERA [Suspect]
     Indication: VIRAL INFECTION
     Dosage: 10MG PER DAY
     Route: 048
     Dates: start: 20130514, end: 20130524
  2. GLUTATHIONE [Concomitant]
     Indication: PRODUCT USED FOR UNKNOWN INDICATION
     Dosage: 1.8G PER DAY
     Route: 065
  3. BIFENDATE [Concomitant]
     Indication: PROPHYLAXIS
     Dosage: 7.5MG THREE TIMES PER DAY
     Route: 048
  4. DEOXYNUCLEOTIDE INJECTION [Concomitant]
     Indication: PRODUCT USED FOR UNKNOWN INDICATION
     Dosage: 150 MG, QD
     Route: 065
  5. SHUGANNING INJECTION [Concomitant]
     Indication: PRODUCT USED FOR UNKNOWN INDICATION
     Dosage: 10 ML, QD
     Route: 065

REACTIONS (3)
  - Alanine aminotransferase increased [Recovering/Resolving]
  - Aspartate aminotransferase increased [Recovering/Resolving]
  - Condition aggravated [Recovering/Resolving]
